FAERS Safety Report 22299567 (Version 1)
Quarter: 2023Q2

REPORT INFORMATION
  Report Type: Spontaneous
  Country: US (occurrence: US)
  Receive Date: 20230509
  Receipt Date: 20230509
  Transmission Date: 20230721
  Serious: Yes (Other)
  Sender: FDA-Public Use
  Company Number: US-BAYER-2023A060265

PATIENT
  Age: 26 Year
  Sex: Female

DRUGS (1)
  1. MIRENA [Suspect]
     Active Substance: LEVONORGESTREL
     Dosage: 20?G/DAY
     Route: 015
     Dates: start: 2020

REACTIONS (5)
  - Rheumatoid arthritis [None]
  - Lung disorder [None]
  - Liver disorder [None]
  - Joint injury [None]
  - Gait disturbance [None]

NARRATIVE: CASE EVENT DATE: 20210101
